FAERS Safety Report 10466975 (Version 3)
Quarter: 2014Q4

REPORT INFORMATION
  Report Type: Spontaneous
  Country: GB (occurrence: GB)
  Receive Date: 20140922
  Receipt Date: 20141014
  Transmission Date: 20150528
  Serious: Yes (Other)
  Sender: FDA-Public Use
  Company Number: GB-TEVA-509044ISR

PATIENT
  Age: 80 Year
  Sex: Female

DRUGS (5)
  1. GABAPENTIN. [Suspect]
     Active Substance: GABAPENTIN
     Indication: NEURALGIA
     Route: 065
  2. IRON (FERROUS GLUCONATE) [Suspect]
     Active Substance: IRON
     Indication: ANAEMIA
     Route: 065
  3. BUTRANS [Suspect]
     Active Substance: BUPRENORPHINE
     Indication: HERPES ZOSTER
  4. BUTRANS [Suspect]
     Active Substance: BUPRENORPHINE
     Indication: NEURALGIA
     Dosage: 120 MCG
     Route: 062
  5. ORAMORPH SR SUSTAINED RELEASE [Suspect]
     Active Substance: MORPHINE SULFATE
     Indication: PRODUCT USED FOR UNKNOWN INDICATION
     Dosage: 20 ML DAILY; 20 ML
     Route: 048
     Dates: start: 201407

REACTIONS (10)
  - Depression [Unknown]
  - Arthritis [Unknown]
  - Dry mouth [Unknown]
  - Visual impairment [Unknown]
  - Confusional state [Unknown]
  - Chronic lymphocytic leukaemia [Unknown]
  - Diverticulitis [Unknown]
  - Drug dependence [Unknown]
  - Balance disorder [Unknown]
  - Clumsiness [Unknown]
